FAERS Safety Report 12896091 (Version 2)
Quarter: 2019Q1

REPORT INFORMATION
  Report Type: Spontaneous
  Country: US (occurrence: US)
  Receive Date: 20161031
  Receipt Date: 20190107
  Transmission Date: 20190417
  Serious: No
  Sender: FDA-Public Use
  Company Number: US-JAZZ-2016-US-016377

PATIENT
  Sex: Female
  Weight: 54.42 kg

DRUGS (25)
  1. CITRACAL-D [Concomitant]
     Active Substance: CALCIUM CITRATE\CHOLECALCIFEROL
  2. MOMETASONE FUROATE. [Concomitant]
     Active Substance: MOMETASONE FUROATE
  3. DEXEDRINE [Suspect]
     Active Substance: DEXTROAMPHETAMINE SULFATE
     Indication: PRODUCT USED FOR UNKNOWN INDICATION
  4. RISPERDAL CONSTA [Concomitant]
     Active Substance: RISPERIDONE
  5. COENZYME Q10 [Concomitant]
     Active Substance: UBIDECARENONE
  6. FISH OIL [Concomitant]
     Active Substance: FISH OIL
  7. MAGNESIUM OXIDE. [Concomitant]
     Active Substance: MAGNESIUM OXIDE
  8. ORTHO TRI CYCLEN LO [Concomitant]
     Active Substance: ETHINYL ESTRADIOL\NORGESTIMATE
  9. XYREM [Suspect]
     Active Substance: SODIUM OXYBATE
     Indication: NARCOLEPSY
     Dosage: 2.25 G, BID
     Route: 048
     Dates: start: 201210, end: 201210
  10. LAMICTAL [Concomitant]
     Active Substance: LAMOTRIGINE
  11. PLANTAGO OVATA [Concomitant]
     Active Substance: HERBALS\PLANTAGO OVATA LEAF
  12. XANAX [Suspect]
     Active Substance: ALPRAZOLAM
     Indication: ANXIETY
     Dosage: UNK
     Dates: start: 20160822, end: 20160822
  13. NAPROXEN SODIUM. [Concomitant]
     Active Substance: NAPROXEN SODIUM
  14. AMANTADINE. [Concomitant]
     Active Substance: AMANTADINE HYDROCHLORIDE
  15. IBUPROFEN. [Concomitant]
     Active Substance: IBUPROFEN
  16. XYREM [Suspect]
     Active Substance: SODIUM OXYBATE
     Indication: CATAPLEXY
     Dosage: DOSE ADJUSTMENTS
     Route: 048
     Dates: start: 201210, end: 201210
  17. ZOLOFT [Concomitant]
     Active Substance: SERTRALINE HYDROCHLORIDE
  18. CALCIUM CARBONATE WITH D3 [Concomitant]
  19. XYREM [Suspect]
     Active Substance: SODIUM OXYBATE
     Dosage: 4.5 G, BID
     Route: 048
     Dates: start: 201210, end: 20160824
  20. RITALIN [Concomitant]
     Active Substance: METHYLPHENIDATE HYDROCHLORIDE
  21. VITAMIN C [Concomitant]
     Active Substance: ASCORBIC ACID
  22. GLUCOSAMINE MSM [Concomitant]
  23. VITAMIN B COMPLEX [Concomitant]
     Active Substance: CYANOCOBALAMIN\DEXPANTHENOL\NIACINAMIDE\PYRIDOXINE HYDROCHLORIDE\RIBOFLAVIN 5^-PHOSPHATE SODIUM\THIAMINE HYDROCHLORIDE\VITAMIN B COMPLEX
  24. ADDERALL [Concomitant]
     Active Substance: AMPHETAMINE ASPARTATE\AMPHETAMINE SULFATE\DEXTROAMPHETAMINE SACCHARATE\DEXTROAMPHETAMINE SULFATE
  25. METHYLPHENIDATE. [Concomitant]
     Active Substance: METHYLPHENIDATE

REACTIONS (12)
  - Chest discomfort [Unknown]
  - Drug interaction [Unknown]
  - Therapeutic response unexpected [Unknown]
  - Blood pressure increased [Recovered/Resolved]
  - Hypersensitivity [Recovering/Resolving]
  - Raynaud^s phenomenon [Unknown]
  - Carpal tunnel syndrome [Not Recovered/Not Resolved]
  - Seborrhoea [Unknown]
  - Apathy [Unknown]
  - Pre-existing condition improved [Unknown]
  - Anxiety [Recovering/Resolving]
  - Pain [Unknown]

NARRATIVE: CASE EVENT DATE: 2016
